FAERS Safety Report 4710735-9 (Version None)
Quarter: 2005Q3

REPORT INFORMATION
  Report Type: 
  Country: None (occurrence: None)
  Receive Date: 20050707
  Receipt Date: 20050624
  Transmission Date: 20060218
  Serious: Yes (Disabling)
  Sender: FDA-Public Use
  Company Number: 11707

PATIENT
  Age: 58 Year
  Sex: Female

DRUGS (4)
  1. PAMIDRONATE DISODIUM [Suspect]
     Indication: COMPLEX REGIONAL PAIN SYNDROME
     Dosage: 30 MG IV
     Route: 042
     Dates: start: 20041123, end: 20041127
  2. SODIUM BICARBONATE/ALGINIC ACID/CALCIUM CARBONATE [Concomitant]
  3. ATENOLOL [Concomitant]
  4. OMEPRAZOLE [Concomitant]

REACTIONS (3)
  - HEADACHE [None]
  - HYPERSOMNIA [None]
  - MENTAL DISORDER [None]
